FAERS Safety Report 4543514-6 (Version None)
Quarter: 2004Q4

REPORT INFORMATION
  Report Type: 
  Country: None (occurrence: None)
  Receive Date: 20041223
  Receipt Date: 20041119
  Transmission Date: 20050328
  Serious: No
  Sender: FDA-Public Use
  Company Number: US-JNJFOC-20041105356

PATIENT

DRUGS (2)
  1. ORTHO EVRA [Suspect]
     Indication: CONTRACEPTION
     Dosage: 1 DOSE(S) 3 IN 4 WEEK TRANSDERMAL
     Route: 062
     Dates: start: 20040901
  2. ORTHO EVRA [Suspect]
     Indication: UTERINE LEIOMYOMA
     Dosage: 1 DOSE(S) 3 IN 4 WEEK TRANSDERMAL
     Route: 062
     Dates: start: 20040901

REACTIONS (1)
  - METRORRHAGIA [None]
